FAERS Safety Report 21989000 (Version 1)
Quarter: 2023Q1

REPORT INFORMATION
  Report Type: Spontaneous
  Country: GB (occurrence: GB)
  Receive Date: 20230214
  Receipt Date: 20230214
  Transmission Date: 20230418
  Serious: Yes (Other)
  Sender: FDA-Public Use
  Company Number: GB-AMGEN-GBRSP2023024002

PATIENT

DRUGS (5)
  1. EVOLOCUMAB [Suspect]
     Active Substance: EVOLOCUMAB
     Indication: Type IIa hyperlipidaemia
     Dosage: UNK
     Route: 065
  2. ATORVASTATIN [Concomitant]
     Active Substance: ATORVASTATIN
     Indication: Type IIa hyperlipidaemia
     Dosage: UNK
  3. ROSUVASTATIN [Concomitant]
     Active Substance: ROSUVASTATIN
     Indication: Type IIa hyperlipidaemia
     Dosage: UNK
  4. SIMVASTATIN [Concomitant]
     Active Substance: SIMVASTATIN
     Indication: Type IIa hyperlipidaemia
     Dosage: UNK
  5. EZETIMIBE [Concomitant]
     Active Substance: EZETIMIBE
     Indication: Type IIa hyperlipidaemia
     Dosage: UNK

REACTIONS (16)
  - Hepatotoxicity [Unknown]
  - Neuropathy peripheral [Unknown]
  - Depressed mood [Unknown]
  - Insomnia [Unknown]
  - Memory impairment [Unknown]
  - Polyuria [Unknown]
  - Adverse event [Unknown]
  - Migraine [Unknown]
  - Vomiting [Unknown]
  - Dizziness [Unknown]
  - Diarrhoea [Unknown]
  - Headache [Unknown]
  - Rash [Unknown]
  - Myalgia [Unknown]
  - Arthralgia [Unknown]
  - Nausea [Unknown]
